FAERS Safety Report 11852948 (Version 2)
Quarter: 2016Q1

REPORT INFORMATION
  Report Type: Spontaneous
  Country: None (occurrence: US)
  Receive Date: 20151218
  Receipt Date: 20160118
  Transmission Date: 20160526
  Serious: No
  Sender: FDA-Public Use
  Company Number: US-MATRIXX INITIATIVES, INC.-1045669

PATIENT
  Age: 29 Year
  Sex: Male

DRUGS (1)
  1. ZICAM COLD REMEDY RAPIDMELTS [Suspect]
     Active Substance: ZINC ACETATE ANHYDROUS\ZINC GLUCONATE
     Indication: NASOPHARYNGITIS
     Route: 048
     Dates: start: 20151203, end: 20151210

REACTIONS (3)
  - Anosmia [Recovering/Resolving]
  - Ageusia [Recovering/Resolving]
  - Gingival swelling [Unknown]
